FAERS Safety Report 20930805 (Version 1)
Quarter: 2022Q2

REPORT INFORMATION
  Report Type: Spontaneous
  Country: US (occurrence: US)
  Receive Date: 20220608
  Receipt Date: 20220608
  Transmission Date: 20220721
  Serious: No
  Sender: FDA-Public Use
  Company Number: US-BEH-2022146308

PATIENT
  Sex: Female

DRUGS (1)
  1. PRIVIGEN [Suspect]
     Active Substance: HUMAN IMMUNOGLOBULIN G
     Dosage: UNK
     Route: 065

REACTIONS (6)
  - Oropharyngeal pain [Unknown]
  - Joint swelling [Unknown]
  - Arthralgia [Unknown]
  - Heart rate increased [Unknown]
  - Feeling hot [Unknown]
  - Cold sweat [Unknown]
